FAERS Safety Report 9395645 (Version 2)
Quarter: 2013Q4

REPORT INFORMATION
  Report Type: Spontaneous
  Country: FR (occurrence: FR)
  Receive Date: 20130711
  Receipt Date: 20131018
  Transmission Date: 20140711
  Serious: Yes (Other)
  Sender: FDA-Public Use
  Company Number: FR-ELI_LILLY_AND_COMPANY-FR201307000642

PATIENT
  Age: 51 Year
  Sex: Male

DRUGS (11)
  1. ZYPREXA [Suspect]
     Dosage: 1 DF, UNKNOWN
     Route: 048
  2. NORSET [Suspect]
  3. NOZINAN [Suspect]
     Dosage: 1 DF, UNKNOWN
     Dates: end: 20130517
  4. NOZINAN [Suspect]
     Dosage: 50 MG, QD
     Dates: start: 201301
  5. NOZINAN [Suspect]
     Dosage: 100 MG, QD
     Dates: start: 20130406
  6. TERALITHE [Suspect]
     Dosage: 1 DF, UNKNOWN
  7. SERESTA [Suspect]
     Dosage: 1 DF, UNKNOWN
  8. VALIUM [Suspect]
     Dosage: 1 DF, UNKNOWN
  9. MOGADON [Suspect]
     Dosage: 1 DF, UNKNOWN
  10. OMEPRAZOLE [Suspect]
     Dosage: 1 DF, UNKNOWN
     Dates: start: 20130328
  11. KARDEGIC [Suspect]
     Dosage: 1 DF, UNKNOWN
     Dates: start: 20130328

REACTIONS (4)
  - Blood lactate dehydrogenase increased [Unknown]
  - Blood creatine phosphokinase increased [Unknown]
  - Myalgia [Unknown]
  - Dyskinesia [Unknown]
